FAERS Safety Report 20557248 (Version 3)
Quarter: 2022Q2

REPORT INFORMATION
  Report Type: Spontaneous
  Country: CO (occurrence: CO)
  Receive Date: 20220307
  Receipt Date: 20220517
  Transmission Date: 20220720
  Serious: No
  Sender: FDA-Public Use
  Company Number: CO-PFIZER INC-202200219623

PATIENT
  Age: 12 Year
  Sex: Male

DRUGS (1)
  1. GENOTROPIN [Suspect]
     Active Substance: SOMATROPIN
     Dosage: 1.8 MG, DAILY
     Route: 058
     Dates: end: 20220121

REACTIONS (2)
  - Device information output issue [Unknown]
  - Drug dose omission by device [Unknown]

NARRATIVE: CASE EVENT DATE: 20220121
